FAERS Safety Report 23183116 (Version 1)
Quarter: 2023Q4

REPORT INFORMATION
  Report Type: Spontaneous
  Country: US (occurrence: US)
  Receive Date: 20231114
  Receipt Date: 20231114
  Transmission Date: 20240110
  Serious: No
  Sender: FDA-Public Use
  Company Number: US-SA-SAC20231107000686

PATIENT
  Sex: Male
  Weight: 19 kg

DRUGS (1)
  1. DUPIXENT [Suspect]
     Active Substance: DUPILUMAB
     Indication: Dermatitis atopic
     Dosage: DOSE AND ROUTE PRESCRIBED - 300 MG UNDER THE SKIN FREQUENCY- EVERY 4 WEEKS
     Route: 058

REACTIONS (2)
  - Eczema [Unknown]
  - Skin infection [Recovering/Resolving]
